FAERS Safety Report 11165984 (Version 2)
Quarter: 2015Q2

REPORT INFORMATION
  Report Type: Spontaneous
  Country: ES (occurrence: ES)
  Receive Date: 20150604
  Receipt Date: 20150624
  Transmission Date: 20150821
  Serious: Yes (Other)
  Sender: FDA-Public Use
  Company Number: ES-OTSUKA-2015_002635

PATIENT
  Sex: Male

DRUGS (5)
  1. NAPROXEN. [Concomitant]
     Active Substance: NAPROXEN
     Indication: GASTROINTESTINAL DISORDER
     Dosage: UNK
     Route: 065
  2. MEROPENEM. [Concomitant]
     Active Substance: MEROPENEM
     Indication: GASTROINTESTINAL DISORDER
     Dosage: UNK
  3. CEFTAZIDIME. [Concomitant]
     Active Substance: CEFTAZIDIME
     Indication: GASTROINTESTINAL DISORDER
     Dosage: UNK
     Route: 065
  4. DACOGEN [Suspect]
     Active Substance: DECITABINE
     Indication: ACUTE MYELOID LEUKAEMIA
     Dosage: RECEIVED 3 DOSES
     Route: 042
     Dates: start: 20150520, end: 20150521
  5. AMIKACIN [Concomitant]
     Active Substance: AMIKACIN
     Indication: GASTROINTESTINAL DISORDER
     Dosage: UNK
     Route: 065

REACTIONS (2)
  - Transaminases increased [Recovered/Resolved]
  - Liver disorder [Not Recovered/Not Resolved]
